FAERS Safety Report 17932932 (Version 1)
Quarter: 2020Q2

REPORT INFORMATION
  Report Type: Spontaneous
  Country: ES (occurrence: ES)
  Receive Date: 20200623
  Receipt Date: 20200623
  Transmission Date: 20200714
  Serious: Yes (Death, Other)
  Sender: FDA-Public Use
  Company Number: ES-PFIZER INC-2020239071

PATIENT
  Age: 72 Year
  Sex: Male

DRUGS (6)
  1. HYDROXYCHLOROQUINE [Suspect]
     Active Substance: HYDROXYCHLOROQUINE
     Indication: COVID-19 PNEUMONIA
     Dosage: UNK
  2. INTERFERON BETA-1B [Suspect]
     Active Substance: INTERFERON BETA-1B
     Dosage: UNK
     Route: 058
  3. LOPINAVIR/RITONAVIR [Suspect]
     Active Substance: LOPINAVIR\RITONAVIR
     Indication: COVID-19 PNEUMONIA
     Dosage: UNK
     Route: 048
  4. AZITHROMYCIN ANHYDROUS. [Suspect]
     Active Substance: AZITHROMYCIN ANHYDROUS
     Indication: PNEUMONIA
     Dosage: UNK
  5. CEFTRIAXONE. [Suspect]
     Active Substance: CEFTRIAXONE
     Indication: COVID-19 PNEUMONIA
     Dosage: UNK
  6. TOCILIZUMAB. [Suspect]
     Active Substance: TOCILIZUMAB
     Dosage: UNK

REACTIONS (14)
  - Dyspnoea [Unknown]
  - Thrombosis [Unknown]
  - Cough [Unknown]
  - Hyperbilirubinaemia [Unknown]
  - Obstructive airways disorder [Unknown]
  - Peripheral arterial occlusive disease [Unknown]
  - Ischaemia [Unknown]
  - Death [Fatal]
  - Secretion discharge [Unknown]
  - Electrocardiogram QT prolonged [Unknown]
  - Disease progression [Unknown]
  - Hepatitis toxic [Unknown]
  - Hypertransaminasaemia [Unknown]
  - Pyrexia [Unknown]
